FAERS Safety Report 4703726-5 (Version None)
Quarter: 2005Q2

REPORT INFORMATION
  Report Type: 
  Country: None (occurrence: None)
  Receive Date: 20050628
  Receipt Date: 20050621
  Transmission Date: 20051028
  Serious: Yes (Other)
  Sender: FDA-Public Use
  Company Number: 2005091035

PATIENT
  Age: 76 Year
  Sex: Male

DRUGS (6)
  1. LIPITOR [Suspect]
     Indication: PROPHYLAXIS
     Dosage: 40 MG (40 MG, 1 IN 1 D),ORAL
     Route: 048
     Dates: start: 20040501, end: 20050101
  2. TAMSULOSIN HYDROCHLORIDE (TAMSULOSIN HYDROCHLORIDE) [Concomitant]
  3. VITAMINS (VITAMINS) [Concomitant]
  4. MAGNESIUM (MAGNESIUM) [Concomitant]
  5. ASPIRIN [Concomitant]
  6. ATIVAN [Concomitant]

REACTIONS (7)
  - ANXIETY [None]
  - DYSPNOEA [None]
  - HEADACHE [None]
  - HEART RATE INCREASED [None]
  - PARAESTHESIA [None]
  - SENSATION OF HEAVINESS [None]
  - WEIGHT DECREASED [None]
